FAERS Safety Report 12347486 (Version 6)
Quarter: 2018Q2

REPORT INFORMATION
  Report Type: Report from Study
  Country: US (occurrence: US)
  Receive Date: 20160509
  Receipt Date: 20180615
  Transmission Date: 20180711
  Serious: Yes (Death, Hospitalization, Other)
  Sender: FDA-Public Use
  Company Number: US-ACTELION-A-NJ2016-135646

PATIENT
  Age: 65 Year
  Sex: Female
  Weight: 55.78 kg

DRUGS (8)
  1. CARVEDILOL. [Concomitant]
     Active Substance: CARVEDILOL
  2. CLONAZEPAM. [Concomitant]
     Active Substance: CLONAZEPAM
  3. ALBUTEROL. [Concomitant]
     Active Substance: ALBUTEROL
  4. ATORVASTATIN [Concomitant]
     Active Substance: ATORVASTATIN
  5. OPSUMIT [Suspect]
     Active Substance: MACITENTAN
     Indication: PULMONARY HYPERTENSION
     Dosage: 10 MG, QD
     Route: 048
     Dates: start: 20150408, end: 20180514
  6. RIOCIGUAT. [Concomitant]
     Active Substance: RIOCIGUAT
  7. ASPIRIN. [Concomitant]
     Active Substance: ASPIRIN
  8. ELIQUIS [Concomitant]
     Active Substance: APIXABAN

REACTIONS (6)
  - Death [Fatal]
  - Lung disorder [Unknown]
  - Back pain [Unknown]
  - Intestinal obstruction [Unknown]
  - Lung neoplasm malignant [Unknown]
  - Colon cancer [Unknown]

NARRATIVE: CASE EVENT DATE: 20180514
